FAERS Safety Report 7807813-4 (Version None)
Quarter: 2011Q4

REPORT INFORMATION
  Report Type: 
  Country: None (occurrence: None)
  Receive Date: 20111011
  Receipt Date: 20111003
  Transmission Date: 20120403
  Serious: No
  Sender: FDA-Public Use
  Company Number: US-B.I. PHARMACEUTICALS,INC./RIDGEFIELD-2011-BP-23365BP

PATIENT
  Sex: Male

DRUGS (6)
  1. SIMVASTATIN [Concomitant]
     Indication: BLOOD CHOLESTEROL INCREASED
     Dosage: 20 MG
     Route: 048
     Dates: start: 20100101
  2. PRADAXA [Suspect]
     Indication: ATRIAL FIBRILLATION
     Dosage: 300 MG
     Route: 048
     Dates: start: 20110501
  3. ATENOLOL [Concomitant]
     Indication: ATRIAL FIBRILLATION
     Dosage: 25 MG
     Route: 048
     Dates: start: 20070101
  4. ASPIRIN [Concomitant]
     Indication: ATRIAL FIBRILLATION
     Dosage: 81 MG
     Route: 048
     Dates: start: 20100101
  5. LYRICA [Concomitant]
     Indication: PERIPHERAL COLDNESS
     Dosage: 150 MG
     Route: 048
     Dates: start: 20100101
  6. NORVASC [Concomitant]
     Dosage: 5 MG
     Route: 048
     Dates: start: 20100101

REACTIONS (2)
  - PLATELET COUNT INCREASED [None]
  - WHITE BLOOD CELL COUNT INCREASED [None]
